FAERS Safety Report 8534744 (Version 3)
Quarter: 2012Q4

REPORT INFORMATION
  Report Type: Report from Study
  Country: CA (occurrence: CA)
  Receive Date: 20120427
  Receipt Date: 20120903
  Transmission Date: 20130627
  Serious: Yes (Death, Hospitalization, Other)
  Sender: FDA-Public Use
  Company Number: CA-BRISTOL-MYERS SQUIBB COMPANY-15195506

PATIENT
  Age: 58 Year
  Sex: Female

DRUGS (19)
  1. ORENCIA [Suspect]
     Indication: RHEUMATOID ARTHRITIS
     Dosage: No of infusions:3
intp:july10
restarted:21Dec11
Last inf:9Jan12,28Mar12
     Route: 042
     Dates: start: 20100708
  2. ARAVA [Concomitant]
  3. ALTACE [Concomitant]
  4. MONOCOR [Concomitant]
  5. B12 [Concomitant]
     Dosage: Injection
  6. VITAMIN D [Concomitant]
  7. INSULIN NPH [Concomitant]
     Dosage: Insulin
  8. IBUPROFEN [Concomitant]
  9. IRON [Concomitant]
     Dosage: also 300mg,BID.
  10. PREDNISONE [Concomitant]
  11. PERCOCET [Concomitant]
  12. PARIET [Concomitant]
  13. HUMIRA [Concomitant]
  14. ADALAT [Concomitant]
  15. VIOKASE [Concomitant]
  16. FLEXERIL [Concomitant]
  17. PREZISTA [Concomitant]
  18. TYLENOL [Concomitant]
  19. PANTOLOC [Concomitant]

REACTIONS (10)
  - Cardiac arrest [Fatal]
  - Localised infection [Unknown]
  - Rheumatoid arthritis [Unknown]
  - Paralysis [Unknown]
  - Nausea [Recovering/Resolving]
  - Diarrhoea [Recovering/Resolving]
  - Asthenia [Not Recovered/Not Resolved]
  - Cystitis [Unknown]
  - Kidney infection [Unknown]
  - Dehydration [Unknown]
